FAERS Safety Report 5663214-9 (Version None)
Quarter: 2008Q1

REPORT INFORMATION
  Report Type: 
  Country: None (occurrence: None)
  Receive Date: 20080313
  Receipt Date: 20080301
  Transmission Date: 20080703
  Serious: Yes (Other)
  Sender: FDA-Public Use
  Company Number: US-PFIZER INC-2008019513

PATIENT
  Sex: Female
  Weight: 69.9 kg

DRUGS (8)
  1. ZITHROMAX [Suspect]
     Indication: NASOPHARYNGITIS
     Route: 048
  2. ZITHROMAX [Suspect]
     Indication: PHARYNGOLARYNGEAL PAIN
     Route: 048
  3. LYRICA [Suspect]
     Indication: FIBROMYALGIA
     Route: 048
     Dates: start: 20070101, end: 20080227
  4. XANAX [Concomitant]
  5. LORTAB [Concomitant]
  6. GABAPENTIN [Concomitant]
  7. FLEXERIL [Concomitant]
  8. NADOLOL [Concomitant]

REACTIONS (7)
  - DRUG INEFFECTIVE [None]
  - DYSGEUSIA [None]
  - DYSPNOEA [None]
  - GLOSSODYNIA [None]
  - INTENTIONAL DRUG MISUSE [None]
  - SWOLLEN TONGUE [None]
  - TONGUE DISORDER [None]
